FAERS Safety Report 9790596 (Version 4)
Quarter: 2014Q1

REPORT INFORMATION
  Report Type: Spontaneous
  Country: CA (occurrence: CA)
  Receive Date: 20131231
  Receipt Date: 20140205
  Transmission Date: 20141002
  Serious: Yes (Hospitalization)
  Sender: FDA-Public Use
  Company Number: CA-CELGENEUS-028-21880-12101729

PATIENT
  Age: 52 Year
  Sex: Male
  Weight: 87.2 kg

DRUGS (38)
  1. REVLIMID [Suspect]
     Indication: PLASMA CELL MYELOMA
     Dosage: 25 MILLIGRAM
     Route: 048
     Dates: start: 20121004
  2. ELOTUZUMAB [Suspect]
     Indication: PLASMA CELL MYELOMA
     Dosage: 10 MILLIGRAM/KILOGRAM
     Route: 041
     Dates: start: 20121004
  3. DEXAMETHASONE [Suspect]
     Indication: PLASMA CELL MYELOMA
     Dosage: 28 MILLIGRAM
     Route: 048
     Dates: start: 20121003
  4. DEXAMETHASONE [Suspect]
     Dosage: 8 MILLIGRAM
     Route: 041
     Dates: start: 20131004
  5. NEUPOGEN [Concomitant]
     Indication: PRODUCT USED FOR UNKNOWN INDICATION
     Route: 065
     Dates: start: 20121130
  6. DALTEPARIN [Concomitant]
     Indication: ADVERSE EVENT
     Route: 065
     Dates: start: 20121009, end: 20121013
  7. LYRICA [Concomitant]
     Indication: PRODUCT USED FOR UNKNOWN INDICATION
     Route: 065
     Dates: start: 20120905, end: 20130416
  8. TYLENOL [Concomitant]
     Indication: ADVERSE EVENT
     Route: 065
     Dates: start: 20121004, end: 20121005
  9. TYLENOL [Concomitant]
     Route: 065
     Dates: start: 20091104
  10. GABAPENTIN [Concomitant]
     Indication: ADVERSE EVENT
     Route: 065
     Dates: start: 20100413
  11. GABAPENTIN [Concomitant]
     Route: 065
     Dates: start: 20121029
  12. HYDROMORPHONE [Concomitant]
     Indication: ADVERSE EVENT
     Route: 065
     Dates: start: 20121010, end: 20121013
  13. HYDROMORPHONE [Concomitant]
     Route: 065
     Dates: start: 20121010, end: 20121028
  14. HYDROMORPHONE [Concomitant]
     Route: 065
     Dates: start: 20121029
  15. LACTULOSE [Concomitant]
     Indication: ADVERSE EVENT
     Route: 065
     Dates: start: 20121012, end: 20121013
  16. MAGNESIUM [Concomitant]
     Indication: ADVERSE EVENT
     Route: 065
     Dates: start: 20121010, end: 20121010
  17. CALCITONIN [Concomitant]
     Indication: ADVERSE EVENT
     Route: 065
     Dates: start: 20121010, end: 20121012
  18. ASA [Concomitant]
     Indication: PRODUCT USED FOR UNKNOWN INDICATION
     Route: 065
     Dates: start: 20121003
  19. ZOLEDRONIC ACID [Concomitant]
     Indication: ADVERSE EVENT
     Route: 065
     Dates: start: 20121009, end: 20121009
  20. ZOLEDRONIC ACID [Concomitant]
     Route: 065
     Dates: start: 20121017
  21. ZOLEDRONIC ACID [Concomitant]
     Route: 065
     Dates: start: 20121018, end: 20121018
  22. FENTANYL [Concomitant]
     Indication: ADVERSE EVENT
     Route: 062
     Dates: start: 20120605, end: 20130624
  23. FENTANYL [Concomitant]
     Route: 065
     Dates: start: 20121009, end: 20121029
  24. SALINE [Concomitant]
     Indication: ADVERSE EVENT
     Route: 065
     Dates: start: 20121003, end: 20121005
  25. SALINE [Concomitant]
     Route: 065
     Dates: start: 20121009, end: 20121009
  26. SALINE [Concomitant]
     Route: 065
     Dates: start: 20121019, end: 20121025
  27. PAMIDRONATE [Concomitant]
     Indication: PRODUCT USED FOR UNKNOWN INDICATION
     Route: 065
     Dates: start: 20121007
  28. AMOXICILLIN [Concomitant]
     Indication: ADVERSE EVENT
     Route: 065
     Dates: start: 20120928, end: 20121004
  29. OXYCODONE [Concomitant]
     Indication: PRODUCT USED FOR UNKNOWN INDICATION
     Route: 065
     Dates: start: 20120701, end: 20130624
  30. MULTIVITAMINS [Concomitant]
     Indication: PRODUCT USED FOR UNKNOWN INDICATION
     Route: 065
     Dates: start: 20120701, end: 201211
  31. VITAMIN D [Concomitant]
     Indication: PRODUCT USED FOR UNKNOWN INDICATION
     Route: 065
     Dates: start: 20090101, end: 201211
  32. SENOKOT [Concomitant]
     Indication: PRODUCT USED FOR UNKNOWN INDICATION
     Route: 065
     Dates: start: 20120605
  33. COLACE [Concomitant]
     Indication: PRODUCT USED FOR UNKNOWN INDICATION
     Route: 065
     Dates: start: 20120605
  34. FLU SHOT [Concomitant]
     Indication: PRODUCT USED FOR UNKNOWN INDICATION
     Route: 065
     Dates: start: 20121120, end: 20121120
  35. PNEUMONIA SHOT [Concomitant]
     Indication: PRODUCT USED FOR UNKNOWN INDICATION
     Route: 065
     Dates: start: 20121120, end: 20121120
  36. PREGABALIN [Concomitant]
     Indication: ADVERSE EVENT
     Route: 065
     Dates: start: 20130709
  37. PEGLYTE [Concomitant]
     Indication: ADVERSE EVENT
     Route: 065
     Dates: start: 20130321
  38. BUPROPION [Concomitant]
     Indication: ADVERSE EVENT
     Route: 065
     Dates: start: 20130318

REACTIONS (2)
  - Hypercalcaemia [Recovered/Resolved]
  - Renal failure acute [Recovered/Resolved]
